FAERS Safety Report 7389915-2 (Version None)
Quarter: 2011Q1

REPORT INFORMATION
  Report Type: 
  Country: None (occurrence: None)
  Receive Date: 20110324
  Receipt Date: 20110310
  Transmission Date: 20110831
  Serious: Yes (Other)
  Sender: FDA-Public Use
  Company Number: 011249

PATIENT
  Sex: Female
  Weight: 128.6 kg

DRUGS (20)
  1. CERTOLIZUMAB PEGOL [Suspect]
     Indication: RHEUMATOID ARTHRITIS
     Dosage: (200 MG 1X/'2 WEEKS SUBCUTANEOUS)
     Route: 058
     Dates: start: 20090728, end: 20100326
  2. CALCIUM [Concomitant]
  3. NEURONTIN [Concomitant]
  4. ACTRAPID INSULIN NOVO [Concomitant]
  5. NYSTATIN [Concomitant]
  6. NIACIN [Concomitant]
  7. DEPO-PROVERA [Concomitant]
  8. DIAZEPAM [Concomitant]
  9. HYDROCODONE [Concomitant]
  10. HTZAAR [Concomitant]
  11. SPIRIVA [Concomitant]
  12. RYTHMOL [Concomitant]
  13. CRESTOR [Concomitant]
  14. ACIPHEX [Concomitant]
  15. DAILY MULTIVITAMIN [Concomitant]
  16. FISH OIL [Concomitant]
  17. ANTIPYRINE W/BENZOCINE [Concomitant]
  18. ASPIRIN [Concomitant]
  19. BUMEX [Concomitant]
  20. ALLEGRA [Concomitant]

REACTIONS (4)
  - CONDITION AGGRAVATED [None]
  - SINUSITIS [None]
  - BRONCHITIS [None]
  - ASTHMA [None]
